FAERS Safety Report 18605855 (Version 3)
Quarter: 2021Q1

REPORT INFORMATION
  Report Type: Spontaneous
  Country: GB (occurrence: GB)
  Receive Date: 20201211
  Receipt Date: 20210208
  Transmission Date: 20210419
  Serious: Yes (Life-Threatening, Hospitalization, Disabling, Other)
  Sender: FDA-Public Use
  Company Number: GB-MYLANLABS-2020M1100236

PATIENT
  Age: 46 Year
  Sex: Female

DRUGS (4)
  1. TRANEXAMIC ACID. [Suspect]
     Active Substance: TRANEXAMIC ACID
     Dosage: TO BE TAKEN DURING MENSTRUAL PERIOD TO REDUCE EXCESSIVE BLEEDING AND PAIN,
     Route: 048
     Dates: start: 2018, end: 2019
  2. TRANEXAMIC ACID. [Suspect]
     Active Substance: TRANEXAMIC ACID
     Indication: MENORRHAGIA
     Dosage: 1 GRAM, TID AS REQUIRED, 1 G, 3X/DAY DURING MENSTRUAL PERIOD
  3. MEFENAMIC ACID. [Concomitant]
     Active Substance: MEFENAMIC ACID
     Indication: PAIN
     Dosage: 500 MILLIGRAM, TID TO BE TAKEN DURING MENSTRUAL PERIOD TO REDUCE
     Route: 048
     Dates: start: 2018, end: 2019
  4. MEFENAMIC ACID. [Concomitant]
     Active Substance: MEFENAMIC ACID
     Indication: MENORRHAGIA
     Dosage: 1500 MILLIGRAM, QD ()500 MG, 3X/DAY DURING MENSTRUAL PERIOD)

REACTIONS (8)
  - Musculoskeletal pain [Unknown]
  - Pulmonary embolism [Recovered/Resolved]
  - Embolism [Unknown]
  - Chest pain [Unknown]
  - False negative investigation result [Recovered/Resolved]
  - Treatment noncompliance [Unknown]
  - Pleuritic pain [Unknown]
  - Non-cardiac chest pain [Unknown]

NARRATIVE: CASE EVENT DATE: 2018
